FAERS Safety Report 5876950-6 (Version None)
Quarter: 2008Q3

REPORT INFORMATION
  Report Type: 
  Country: None (occurrence: None)
  Receive Date: 20080909
  Receipt Date: 20080909
  Transmission Date: 20090109
  Serious: Yes (Life-Threatening)
  Sender: FDA-Public Use
  Company Number: None

PATIENT
  Age: 6 Year
  Sex: Female
  Weight: 28.8 kg

DRUGS (1)
  1. PROPYLTHIOURACIL [Suspect]
     Indication: BASEDOW'S DISEASE
     Dates: start: 20040101, end: 20040101

REACTIONS (3)
  - AUTOIMMUNE HEPATITIS [None]
  - CONDITION AGGRAVATED [None]
  - LIVER TRANSPLANT [None]
